FAERS Safety Report 9261820 (Version 2)
Quarter: 2013Q2

REPORT INFORMATION
  Report Type: Spontaneous
  Country: IE (occurrence: IE)
  Receive Date: 20130429
  Receipt Date: 20130429
  Transmission Date: 20140414
  Serious: Yes (Hospitalization)
  Sender: FDA-Public Use
  Company Number: IE-BAXTER-2013BAX014390

PATIENT
  Sex: Female

DRUGS (3)
  1. SODIUM CHLORIDE 0.9% W/V INTRAVENOUS INFUSION BP, POLYOLEFIN/POLYAMIDE [Suspect]
     Indication: MEDICATION DILUTION
     Route: 042
     Dates: start: 20130411
  2. WATER FOR INJECTIONS PH.EUR [Suspect]
     Indication: MEDICATION DILUTION
     Route: 042
     Dates: start: 20130411
  3. CASPOFUNGIN [Suspect]
     Indication: LEUKAEMIA
     Route: 042
     Dates: start: 20130411

REACTIONS (3)
  - Pyrexia [Unknown]
  - Chills [Unknown]
  - Neutropenia [Unknown]
